FAERS Safety Report 6376242-5 (Version None)
Quarter: 2009Q3

REPORT INFORMATION
  Report Type: 
  Country: None (occurrence: None)
  Receive Date: 20090925
  Receipt Date: 20090917
  Transmission Date: 20100115
  Serious: Yes (Hospitalization)
  Sender: FDA-Public Use
  Company Number: AT-BIOGENIDEC-2009BI025509

PATIENT
  Age: 38 Year
  Sex: Female
  Weight: 45 kg

DRUGS (4)
  1. TYSABRI [Suspect]
     Indication: MULTIPLE SCLEROSIS
     Route: 042
     Dates: start: 20080627, end: 20090227
  2. TYSABRI [Suspect]
     Route: 042
     Dates: start: 20090410
  3. NSAIDS [Concomitant]
  4. ANTI CONTRACEPTIVE [Concomitant]

REACTIONS (1)
  - GASTROENTERITIS [None]
